FAERS Safety Report 7115240-0 (Version None)
Quarter: 2010Q4

REPORT INFORMATION
  Report Type: 
  Country: None (occurrence: None)
  Receive Date: 20101122
  Receipt Date: 20091123
  Transmission Date: 20110411
  Serious: No
  Sender: FDA-Public Use
  Company Number: A0835842A

PATIENT
  Age: 64 Year
  Sex: Male
  Weight: 88.6 kg

DRUGS (3)
  1. EVOCLIN [Suspect]
     Indication: FOLLICULITIS
     Route: 061
     Dates: start: 20091121, end: 20091122
  2. LOVASTATIN [Concomitant]
     Dosage: 20MG PER DAY
  3. ASPIRIN [Concomitant]
     Dosage: 81MG PER DAY

REACTIONS (1)
  - DIARRHOEA [None]
